FAERS Safety Report 20455337 (Version 4)
Quarter: 2025Q1

REPORT INFORMATION
  Report Type: Report from Study
  Country: ES (occurrence: ES)
  Receive Date: 20220210
  Receipt Date: 20250219
  Transmission Date: 20250408
  Serious: No
  Sender: JOHNSON AND JOHNSON
  Company Number: ES-JNJFOC-20220161478

PATIENT
  Age: 65 Year
  Sex: Female

DRUGS (4)
  1. SIMPONI [Suspect]
     Active Substance: GOLIMUMAB
     Indication: Colitis ulcerative
     Route: 058
     Dates: start: 20160808, end: 20190122
  2. SIMPONI [Suspect]
     Active Substance: GOLIMUMAB
     Route: 058
     Dates: start: 20190122
  3. SIMPONI [Suspect]
     Active Substance: GOLIMUMAB
     Route: 058
     Dates: start: 20160808, end: 20190122
  4. SIMPONI [Suspect]
     Active Substance: GOLIMUMAB
     Route: 058
     Dates: start: 20190122, end: 20250114

REACTIONS (3)
  - Off label use [Unknown]
  - Incorrect dose administered [Unknown]
  - Basal cell carcinoma [Recovered/Resolved]

NARRATIVE: CASE EVENT DATE: 20160808
